FAERS Safety Report 16104538 (Version 14)
Quarter: 2024Q1

REPORT INFORMATION
  Report Type: Other
  Country: DE (occurrence: DE)
  Receive Date: 20190322
  Receipt Date: 20240227
  Transmission Date: 20240410
  Serious: Yes (Other)
  Sender: FDA-Public Use
  Company Number: DE-ROCHE-2288237

PATIENT
  Age: 60 Year
  Sex: Male

DRUGS (25)
  1. OCREVUS [Suspect]
     Active Substance: OCRELIZUMAB
     Indication: Primary progressive multiple sclerosis
     Route: 042
     Dates: start: 20190212
  2. OCREVUS [Suspect]
     Active Substance: OCRELIZUMAB
     Route: 042
     Dates: start: 20190226
  3. OCREVUS [Suspect]
     Active Substance: OCRELIZUMAB
     Route: 042
     Dates: start: 20190828, end: 2019
  4. OCREVUS [Suspect]
     Active Substance: OCRELIZUMAB
     Route: 042
     Dates: start: 20200902
  5. OCREVUS [Suspect]
     Active Substance: OCRELIZUMAB
     Route: 042
     Dates: start: 20190212
  6. OCREVUS [Suspect]
     Active Substance: OCRELIZUMAB
     Route: 042
  7. OCREVUS [Suspect]
     Active Substance: OCRELIZUMAB
     Route: 042
     Dates: start: 20211108
  8. OCREVUS [Suspect]
     Active Substance: OCRELIZUMAB
     Route: 042
     Dates: start: 20190212
  9. NABIXIMOLS [Suspect]
     Active Substance: NABIXIMOLS
     Indication: Muscle spasticity
     Route: 042
  10. COMIRNATY (TOZINAMERAN) [Suspect]
     Active Substance: TOZINAMERAN
     Indication: Product used for unknown indication
     Dosage: 2ND VACCINATION
     Route: 065
     Dates: start: 20210820
  11. TRIAMCINOLONE ACETONIDE [Suspect]
     Active Substance: TRIAMCINOLONE ACETONIDE
     Indication: Product used for unknown indication
     Route: 065
  12. OMEGA-3 ACIDS [Concomitant]
     Active Substance: OMEGA-3 FATTY ACIDS
  13. MYDOCALM [Concomitant]
  14. TAMSULOSIN [Concomitant]
     Active Substance: TAMSULOSIN
  15. DALFAMPRIDINE [Concomitant]
     Active Substance: DALFAMPRIDINE
  16. CANDESARTAN [Concomitant]
     Active Substance: CANDESARTAN
  17. CANDESARTAN [Concomitant]
     Active Substance: CANDESARTAN
  18. PREGABALIN [Concomitant]
     Active Substance: PREGABALIN
  19. DOMPERIDONE [Concomitant]
     Active Substance: DOMPERIDONE
  20. PNEUMOCOCCAL VACCINE POLYVALENT NOS [Concomitant]
     Active Substance: PNEUMOCOCCAL VACCINE POLYVALENT
     Dates: start: 20190716
  21. BACLOFEN [Concomitant]
     Active Substance: BACLOFEN
  22. BACLOFEN [Concomitant]
     Active Substance: BACLOFEN
  23. BACLOFEN [Concomitant]
     Active Substance: BACLOFEN
  24. BACLOFEN [Concomitant]
     Active Substance: BACLOFEN
  25. BACLOFEN [Concomitant]
     Active Substance: BACLOFEN

REACTIONS (43)
  - Feeling hot [Recovered/Resolved]
  - COVID-19 [Unknown]
  - Upper respiratory tract infection [Recovered/Resolved]
  - Pain in extremity [Recovering/Resolving]
  - Vitamin B complex deficiency [Recovered/Resolved]
  - Blood iron increased [Recovered/Resolved]
  - Blood creatine phosphokinase increased [Unknown]
  - Ear discomfort [Recovered/Resolved]
  - Fatigue [Recovering/Resolving]
  - Arthralgia [Recovered/Resolved]
  - Chest pain [Recovered/Resolved]
  - Vitamin D decreased [Recovered/Resolved]
  - Constipation [Recovered/Resolved]
  - Peripheral swelling [Recovered/Resolved]
  - Alanine aminotransferase increased [Recovered/Resolved]
  - Abdominal pain upper [Recovered/Resolved]
  - Rash erythematous [Recovered/Resolved]
  - Proctalgia [Not Recovered/Not Resolved]
  - Muscular weakness [Recovering/Resolving]
  - Lyme disease [Recovered/Resolved]
  - Acne [Not Recovered/Not Resolved]
  - Muscle spasticity [Recovering/Resolving]
  - Wound [Recovered/Resolved]
  - Benign neoplasm [Not Recovered/Not Resolved]
  - Basophil count increased [Recovered/Resolved]
  - Feeling hot [Recovered/Resolved]
  - Urinary tract infection [Recovered/Resolved]
  - Skin burning sensation [Recovered/Resolved]
  - Tremor [Not Recovered/Not Resolved]
  - Nausea [Recovered/Resolved]
  - General physical health deterioration [Recovered/Resolved]
  - Muscle spasms [Unknown]
  - Nasopharyngitis [Recovered/Resolved]
  - Oropharyngeal pain [Recovered/Resolved]
  - Transferrin saturation increased [Recovered/Resolved]
  - Osteonecrosis [Recovered/Resolved]
  - Asthenia [Recovering/Resolving]
  - Glomerular filtration rate decreased [Recovered/Resolved]
  - Renal pain [Recovered/Resolved]
  - Nephrolithiasis [Not Recovered/Not Resolved]
  - Fatigue [Recovered/Resolved]
  - Musculoskeletal stiffness [Not Recovered/Not Resolved]
  - Pain in extremity [Recovered/Resolved]

NARRATIVE: CASE EVENT DATE: 20190301
